FAERS Safety Report 7948741-3 (Version None)
Quarter: 2011Q4

REPORT INFORMATION
  Report Type: 
  Country: None (occurrence: None)
  Receive Date: 20111128
  Receipt Date: 20111128
  Transmission Date: 20120403
  Serious: Yes (Hospitalization)
  Sender: FDA-Public Use
  Company Number: None

PATIENT
  Age: 75 Year
  Sex: Male
  Weight: 88.6 kg

DRUGS (1)
  1. DOCETAXEL [Suspect]
     Indication: PROSTATE CANCER
     Dosage: 150 MG IV
     Route: 042
     Dates: start: 20110622, end: 20111012

REACTIONS (1)
  - PNEUMONITIS [None]
